FAERS Safety Report 18975764 (Version 1)
Quarter: 2021Q1

REPORT INFORMATION
  Report Type: Spontaneous
  Country: US (occurrence: US)
  Receive Date: 20210306
  Receipt Date: 20210306
  Transmission Date: 20210420
  Serious: No
  Sender: FDA-Public Use
  Company Number: US-AMGEN-USASP2021031857

PATIENT
  Age: 52 Year

DRUGS (3)
  1. BUSULFAN. [Concomitant]
     Active Substance: BUSULFAN
     Dosage: 1 MILLIGRAM/KILOGRAM, Q6H
     Route: 048
  2. FILGRASTIM [Suspect]
     Active Substance: FILGRASTIM
     Indication: AUTOLOGOUS HAEMATOPOIETIC STEM CELL TRANSPLANT
     Dosage: 16 MICROGRAM/KILOGRAM, QD
     Route: 065
  3. PHENYTOIN. [Concomitant]
     Active Substance: PHENYTOIN
     Indication: SEIZURE PROPHYLAXIS
     Dosage: UNK

REACTIONS (1)
  - Disease progression [Unknown]
